FAERS Safety Report 10042934 (Version 2)
Quarter: 2014Q2

REPORT INFORMATION
  Report Type: Spontaneous
  Country: US (occurrence: US)
  Receive Date: 20140328
  Receipt Date: 20140422
  Transmission Date: 20141212
  Serious: Yes (Death, Hospitalization)
  Sender: FDA-Public Use
  Company Number: US-009507513-1403USA010724

PATIENT
  Age: 71 Year
  Sex: Male
  Weight: 91.16 kg

DRUGS (1)
  1. TEMODAR [Suspect]
     Indication: ASTROCYTOMA
     Dosage: 320 MG OF DAILY FOR 5 DAYS ON A 28 DAY CYCLE/ 140MG CAPS AND 20 MG CAPS
     Route: 048
     Dates: start: 20130605, end: 20140129

REACTIONS (2)
  - Death [Fatal]
  - Adverse event [Unknown]
